FAERS Safety Report 6967301-4 (Version None)
Quarter: 2010Q3

REPORT INFORMATION
  Report Type: 
  Country: None (occurrence: None)
  Receive Date: 20100901
  Receipt Date: 20100823
  Transmission Date: 20110219
  Serious: Yes (Life-Threatening, Hospitalization)
  Sender: FDA-Public Use
  Company Number: 2010MA002049

PATIENT
  Age: 59 Year
  Sex: Female

DRUGS (3)
  1. IBUPROFEN [Suspect]
     Indication: ARTHRALGIA
     Dosage: 600 MG; ; PO
     Route: 048
  2. BOSWELLIA SACRA (NO PREF. NAME) [Suspect]
     Indication: ARTHRALGIA
     Dosage: 1 DF; ;PO
     Route: 048
  3. ACETYLSALICYLIC ACID [Concomitant]

REACTIONS (3)
  - GASTROINTESTINAL HAEMORRHAGE [None]
  - HAEMOGLOBIN DECREASED [None]
  - UNEVALUABLE EVENT [None]
